FAERS Safety Report 6904781-4 (Version None)
Quarter: 2010Q3

REPORT INFORMATION
  Report Type: 
  Country: None (occurrence: None)
  Receive Date: 20100804
  Receipt Date: 20090711
  Transmission Date: 20110219
  Serious: Yes (Other)
  Sender: FDA-Public Use
  Company Number: US-PFIZER INC-2009240553

PATIENT
  Sex: Female
  Weight: 52.608 kg

DRUGS (2)
  1. LYRICA [Suspect]
     Indication: FIBROMYALGIA
  2. CHANTIX [Interacting]
     Indication: SMOKING CESSATION THERAPY
     Dosage: FREQUENCY: 2X/DAY, EVERY DAY;
     Dates: start: 20090701, end: 20090710

REACTIONS (8)
  - ABDOMINAL DISCOMFORT [None]
  - ARTHRALGIA [None]
  - DIZZINESS [None]
  - DRUG INTERACTION [None]
  - EMOTIONAL DISORDER [None]
  - HEADACHE [None]
  - MYALGIA [None]
  - SUICIDAL IDEATION [None]
